FAERS Safety Report 8551849-5 (Version None)
Quarter: 2012Q3

REPORT INFORMATION
  Report Type: 
  Country: None (occurrence: None)
  Receive Date: 20120730
  Receipt Date: 20120724
  Transmission Date: 20120928
  Serious: Yes (Other)
  Sender: FDA-Public Use
  Company Number: FR-FRI-1000017403

PATIENT
  Sex: Female

DRUGS (10)
  1. LEVOTHYROXINE SODIUM [Concomitant]
  2. MILNACIPRAN [Suspect]
     Indication: PRODUCT USED FOR UNKNOWN INDICATION
     Dosage: 100 MG
     Route: 048
  3. APIXABAN [Suspect]
     Indication: EMBOLISM
     Route: 048
     Dates: start: 20101021, end: 20101022
  4. ENOXAPARIN SODIUM [Suspect]
     Indication: EMBOLISM
     Dosage: 87 ML
     Route: 058
     Dates: start: 20101021, end: 20101022
  5. ABILIFY [Suspect]
     Indication: PRODUCT USED FOR UNKNOWN INDICATION
     Dosage: 10 MG
     Route: 048
  6. PROPRANOLOL HYDROCHLORIDE [Concomitant]
  7. WARFARIN SODIUM [Suspect]
     Indication: EMBOLISM
     Dosage: 6 MG
     Route: 048
     Dates: start: 20101021, end: 20101021
  8. PLACEBO [Suspect]
     Indication: EMBOLISM ARTERIAL
     Dates: start: 20101021, end: 20101001
  9. LEPTICUR [Concomitant]
  10. NEXIUM [Concomitant]
     Dates: start: 20101021

REACTIONS (1)
  - PSYCHIATRIC DECOMPENSATION [None]
